FAERS Safety Report 9089434 (Version 1)
Quarter: 2013Q1

REPORT INFORMATION
  Report Type: Spontaneous
  Country: US (occurrence: US)
  Receive Date: 20130201
  Receipt Date: 20130201
  Transmission Date: 20140127
  Serious: No
  Sender: FDA-Public Use
  Company Number: US-PFIZER INC-2013040441

PATIENT
  Sex: Male

DRUGS (1)
  1. ADVIL [Suspect]
     Indication: OSTEOARTHRITIS
     Dosage: 800 MG, DAILY
     Dates: start: 2012

REACTIONS (1)
  - Pruritus [Not Recovered/Not Resolved]
